FAERS Safety Report 9882972 (Version 1)
Quarter: 2014Q1

REPORT INFORMATION
  Report Type: Spontaneous
  Country: IT (occurrence: None)
  Receive Date: 20140204
  Receipt Date: 20140204
  Transmission Date: 20141002
  Serious: Yes (Other)
  Sender: FDA-Public Use
  Company Number: 2014P1000434

PATIENT
  Age: 66 Month
  Sex: Male
  Weight: 28.7 kg

DRUGS (2)
  1. PREDNISONE [Suspect]
     Indication: DYSPNOEA
  2. ALBUTEROL [Concomitant]

REACTIONS (6)
  - Dyspnoea [None]
  - Wheezing [None]
  - Respiratory rate increased [None]
  - Tracheal obstruction [None]
  - Tracheal mass [None]
  - Inflammatory myofibroblastic tumour [None]
